FAERS Safety Report 14806339 (Version 1)
Quarter: 2018Q2

REPORT INFORMATION
  Report Type: Spontaneous
  Country: ES (occurrence: ES)
  Receive Date: 20180425
  Receipt Date: 20180425
  Transmission Date: 20180711
  Serious: Yes (Hospitalization)
  Sender: FDA-Public Use
  Company Number: ES-ROCHE-2110560

PATIENT
  Age: 76 Year
  Sex: Female
  Weight: 59 kg

DRUGS (4)
  1. PERTUZUMAB. [Interacting]
     Active Substance: PERTUZUMAB
     Indication: OESTROGEN RECEPTOR POSITIVE BREAST CANCER
     Route: 042
     Dates: start: 20171205
  2. DOBUPAL [Concomitant]
     Active Substance: VENLAFAXINE HYDROCHLORIDE
     Indication: DEPRESSION
     Route: 048
     Dates: start: 20170101, end: 20180117
  3. PACLITAXEL. [Interacting]
     Active Substance: PACLITAXEL
     Indication: OESTROGEN RECEPTOR POSITIVE BREAST CANCER
     Route: 042
     Dates: start: 20171205
  4. TRASTUZUMAB. [Suspect]
     Active Substance: TRASTUZUMAB
     Indication: OESTROGEN RECEPTOR POSITIVE BREAST CANCER
     Route: 042
     Dates: start: 20171205

REACTIONS (3)
  - Neutropenia [Recovered/Resolved]
  - Atrial flutter [Recovered/Resolved]
  - Diarrhoea [Recovered/Resolved]

NARRATIVE: CASE EVENT DATE: 20180113
